FAERS Safety Report 5717006-2 (Version None)
Quarter: 2008Q2

REPORT INFORMATION
  Report Type: 
  Country: None (occurrence: None)
  Receive Date: 20080423
  Receipt Date: 20080410
  Transmission Date: 20081010
  Serious: Yes (Congenital Anomaly)
  Sender: FDA-Public Use
  Company Number: 2008-175434-NL

PATIENT
  Sex: Female

DRUGS (1)
  1. NUVARING [Suspect]
     Dosage: TRANSPLACENTAL
     Route: 064

REACTIONS (7)
  - ABORTION INDUCED [None]
  - AORTIC DISORDER [None]
  - CONGENITAL HIP DEFORMITY [None]
  - CONGENITAL SPINAL CORD ANOMALY [None]
  - DEXTROCARDIA [None]
  - DRUG EXPOSURE DURING PREGNANCY [None]
  - RIB DEFORMITY [None]
